FAERS Safety Report 17237936 (Version 1)
Quarter: 2020Q1

REPORT INFORMATION
  Report Type: Spontaneous
  Country: US (occurrence: US)
  Receive Date: 20200106
  Receipt Date: 20200106
  Transmission Date: 20200409
  Serious: Yes (Hospitalization)
  Sender: FDA-Public Use
  Company Number: US-PACIRA-201800011

PATIENT
  Age: 55 Year
  Sex: Female
  Weight: 58.5 kg

DRUGS (1)
  1. EXPAREL [Suspect]
     Active Substance: BUPIVACAINE
     Indication: HAEMORRHOID OPERATION
     Dosage: 266 MG, ONE TIME DOSE, PRN, FREQUENCY : PRN
     Route: 058

REACTIONS (1)
  - Seizure [Recovered/Resolved]

NARRATIVE: CASE EVENT DATE: 20150902
